FAERS Safety Report 4986267-X (Version None)
Quarter: 2006Q2

REPORT INFORMATION
  Report Type: 
  Country: None (occurrence: None)
  Receive Date: 20060424
  Receipt Date: 20060409
  Transmission Date: 20061013
  Serious: Yes (Other)
  Sender: FDA-Public Use
  Company Number: 2006052460

PATIENT
  Age: 11 Year
  Sex: Male
  Weight: 35.3806 kg

DRUGS (2)
  1. BENADRYL [Suspect]
     Indication: RASH
     Dosage: A TAB EVERY NIGHT, ORAL
     Route: 048
     Dates: end: 20060406
  2. TRIAMCINOLONE [Concomitant]

REACTIONS (5)
  - DYSKINESIA [None]
  - DYSPHEMIA [None]
  - EYE ROLLING [None]
  - SPEECH DISORDER [None]
  - VERTIGO [None]
